FAERS Safety Report 8845790 (Version 2)
Quarter: 2012Q4

REPORT INFORMATION
  Report Type: 
  Country: US (occurrence: US)
  Receive Date: 20121017
  Receipt Date: 20121029
  Transmission Date: 20130627
  Serious: Yes (Other)
  Sender: FDA-Public Use
  Company Number: US-PFIZER INC-2012255081

PATIENT
  Age: 61 Year
  Sex: Female
  Weight: 43.08 kg

DRUGS (10)
  1. LYRICA [Suspect]
     Indication: PAIN
     Dosage: UNK
     Dates: start: 2010
  2. LYRICA [Suspect]
     Indication: NUMBNESS
     Dosage: 50 mg, 2x/day
     Dates: start: 20121011, end: 20121011
  3. LYRICA [Suspect]
     Indication: PARAESTHESIA
     Dosage: 50 mg, Daily at nighttime
     Dates: start: 20121012
  4. LYRICA [Suspect]
     Dosage: UNK, 2x/day
     Dates: start: 20121011
  5. ACETAMINOPHEN [Suspect]
     Indication: LEG PAIN
     Dosage: UNK
     Route: 048
  6. ACETAMINOPHEN [Suspect]
     Dosage: 1000 mg, Daily
     Route: 048
     Dates: start: 201210
  7. CLONIDINE [Concomitant]
     Indication: RESTLESS LEG SYNDROME
     Dosage: 1 mg, daily
     Dates: start: 2007
  8. KLONOPIN [Concomitant]
     Indication: RESTLESS LEG SYNDROME
     Dosage: 1 mg, UNK
  9. DOXYCYCLINE [Concomitant]
     Indication: EYE DISORDER
     Dosage: 50 mg, UNK
  10. FISH OIL [Concomitant]
     Dosage: UNK

REACTIONS (8)
  - Cataract [Unknown]
  - Oxygen saturation decreased [Unknown]
  - Dry eye [Unknown]
  - Drug ineffective [Unknown]
  - Peripheral coldness [Unknown]
  - Gait disturbance [Recovered/Resolved]
  - Dizziness [Recovered/Resolved]
  - Somnolence [Recovered/Resolved]
